FAERS Safety Report 8236459 (Version 2)
Quarter: 2012Q4

REPORT INFORMATION
  Report Type: 
  Country: US (occurrence: US)
  Receive Date: 20111108
  Receipt Date: 20121016
  Transmission Date: 20130627
  Serious: Yes (Hospitalization)
  Sender: FDA-Public Use
  Company Number: US-US-EMD SERONO, INC.-7093148

PATIENT
  Age: 23 None
  Sex: Female

DRUGS (1)
  1. REBIF [Suspect]
     Indication: MULTIPLE SCLEROSIS
     Route: 058
     Dates: start: 20110803

REACTIONS (7)
  - Hemiparesis [Unknown]
  - Mood swings [Not Recovered/Not Resolved]
  - Central nervous system lesion [Unknown]
  - Urinary tract infection [Unknown]
  - Headache [Not Recovered/Not Resolved]
  - Injection site erythema [Recovered/Resolved]
  - Depression [Not Recovered/Not Resolved]
